FAERS Safety Report 11423587 (Version 1)
Quarter: 2015Q3

REPORT INFORMATION
  Report Type: Spontaneous
  Country: US (occurrence: US)
  Receive Date: 20150827
  Receipt Date: 20150827
  Transmission Date: 20151125
  Serious: No
  Sender: FDA-Public Use
  Company Number: US-JNJFOC-20150415626

PATIENT
  Age: 71 Year
  Sex: Female
  Weight: 71.67 kg

DRUGS (3)
  1. MOTRIN IB [Suspect]
     Active Substance: IBUPROFEN
     Indication: ARTHRALGIA
     Dosage: 4-6 TIMES DAILY
     Route: 048
  2. ALCOHOL. [Concomitant]
     Active Substance: ALCOHOL
     Dosage: A GLASS OF WINE ABOUT 3 TIMES A WEEK
     Route: 065
  3. MOTRIN IB [Suspect]
     Active Substance: IBUPROFEN
     Route: 048

REACTIONS (1)
  - Contusion [Not Recovered/Not Resolved]
